FAERS Safety Report 6580181-4 (Version None)
Quarter: 2010Q1

REPORT INFORMATION
  Report Type: 
  Country: None (occurrence: None)
  Receive Date: 20100212
  Receipt Date: 20100202
  Transmission Date: 20100710
  Serious: Yes (Life-Threatening, Hospitalization)
  Sender: FDA-Public Use
  Company Number: GB-NAPPMUNDI-GBR-2009-0005983

PATIENT
  Sex: Male

DRUGS (5)
  1. OXYNORM [Suspect]
     Indication: ANALGESIC THERAPY
     Dosage: 90 MG, UNK
  2. SUNITINIB MALATE [Suspect]
     Indication: PROSTATE CANCER METASTATIC
     Dosage: 37.5 MG, DAILY
     Route: 048
     Dates: start: 20090707, end: 20091026
  3. PREDNISOLONE [Suspect]
     Indication: PROSTATE CANCER METASTATIC
     Dosage: 10 MG, BID
     Route: 048
     Dates: start: 20090707, end: 20091026
  4. DALTEPARIN [Concomitant]
     Dosage: 18000 UNK, UNK
     Route: 058
  5. FENTANYL-100 [Concomitant]
     Indication: ANALGESIC THERAPY
     Dosage: UNK

REACTIONS (2)
  - HAEMOGLOBIN DECREASED [None]
  - RESPIRATORY ARREST [None]
